FAERS Safety Report 5607842-5 (Version None)
Quarter: 2008Q1

REPORT INFORMATION
  Report Type: 
  Country: None (occurrence: None)
  Receive Date: 20080130
  Receipt Date: 20071024
  Transmission Date: 20080703
  Serious: No
  Sender: FDA-Public Use
  Company Number: US-BAYER-200714158BWH

PATIENT
  Age: 73 Year
  Sex: Male

DRUGS (9)
  1. NEXAVAR [Suspect]
     Indication: HEPATIC NEOPLASM MALIGNANT
     Dosage: TOTAL DAILY DOSE: 800 MG  UNIT DOSE: 200 MG
     Route: 048
     Dates: start: 20070930
  2. HEPSERA [Concomitant]
  3. DISODIUM CLODRONATE [Concomitant]
  4. LISINOPRIL [Concomitant]
  5. CARDIZEM [Concomitant]
  6. DIURETIC [Concomitant]
  7. RESTORIL [Concomitant]
  8. AMBIEN CR [Concomitant]
  9. HERBAL SUPPLEMENTS [Concomitant]

REACTIONS (4)
  - ANOREXIA [None]
  - ASTHENIA [None]
  - DRY SKIN [None]
  - NEURALGIA [None]
